FAERS Safety Report 16108660 (Version 1)
Quarter: 2019Q1

REPORT INFORMATION
  Report Type: Spontaneous
  Country: IT (occurrence: IT)
  Receive Date: 20190323
  Receipt Date: 20190323
  Transmission Date: 20190418
  Serious: Yes (Life-Threatening)
  Sender: FDA-Public Use
  Company Number: IT-ACCORD-112901

PATIENT
  Age: 58 Year
  Sex: Male
  Weight: 77 kg

DRUGS (3)
  1. PACLITAXEL ACCORD [Suspect]
     Active Substance: PACLITAXEL
     Indication: PRODUCT USED FOR UNKNOWN INDICATION
     Dosage: 6 MG / ML, CONCENTRATE FOR SOLUTION
     Route: 041
     Dates: start: 20181005, end: 20181005
  2. FLEBOCORTID RICHTER [Concomitant]
  3. DESAMETASONE [Concomitant]
     Active Substance: DEXAMETHASONE

REACTIONS (4)
  - Infusion related reaction [Recovered/Resolved]
  - Back pain [Recovered/Resolved]
  - Dyspnoea [Recovered/Resolved]
  - Erythema [Recovered/Resolved]

NARRATIVE: CASE EVENT DATE: 20181005
